FAERS Safety Report 8082468-5 (Version None)
Quarter: 2012Q1

REPORT INFORMATION
  Report Type: 
  Country: None (occurrence: None)
  Receive Date: 20120127
  Receipt Date: 20110221
  Transmission Date: 20120608
  Serious: No
  Sender: FDA-Public Use
  Company Number: US-ABBOTT-11P-163-0706454-00

PATIENT
  Age: 52 Year
  Sex: Male

DRUGS (12)
  1. HUMIRA [Suspect]
     Indication: POLYCHONDRITIS
     Dates: start: 20110218
  2. TRAZODONE HCL [Concomitant]
     Indication: PRODUCT USED FOR UNKNOWN INDICATION
     Dosage: 1-2 TABLETS AT BEDTIME
  3. BYSTOLIC [Concomitant]
     Indication: PRODUCT USED FOR UNKNOWN INDICATION
  4. PREDNISONE TAB [Concomitant]
     Indication: PRODUCT USED FOR UNKNOWN INDICATION
  5. OPANA ER [Concomitant]
     Indication: PRODUCT USED FOR UNKNOWN INDICATION
  6. GLIMEPIRIDE [Concomitant]
     Indication: PRODUCT USED FOR UNKNOWN INDICATION
     Dosage: 1 TABLET
  7. CYMBALTA [Concomitant]
     Indication: PRODUCT USED FOR UNKNOWN INDICATION
  8. TEKTURNA [Concomitant]
     Indication: PRODUCT USED FOR UNKNOWN INDICATION
  9. LISINOPRIL AND HYDROCHLOROTHIAZIDE [Concomitant]
     Indication: PRODUCT USED FOR UNKNOWN INDICATION
  10. JANUMET [Concomitant]
     Indication: PRODUCT USED FOR UNKNOWN INDICATION
  11. ADVAIR DISKUS 100/50 [Concomitant]
     Indication: PRODUCT USED FOR UNKNOWN INDICATION
     Dosage: 25/50 1 PUFF
  12. OMEPRAZOLE [Concomitant]
     Indication: PRODUCT USED FOR UNKNOWN INDICATION

REACTIONS (1)
  - INSOMNIA [None]
